FAERS Safety Report 7306426-0 (Version None)
Quarter: 2011Q1

REPORT INFORMATION
  Report Type: 
  Country: None (occurrence: None)
  Receive Date: 20110222
  Receipt Date: 20110217
  Transmission Date: 20110831
  Serious: Yes (Hospitalization)
  Sender: FDA-Public Use
  Company Number: US-ABBOTT-11P-163-0706300-00

PATIENT
  Sex: Female
  Weight: 63.56 kg

DRUGS (4)
  1. HUMIRA [Suspect]
     Indication: CROHN'S DISEASE
     Dates: start: 20100601
  2. PREDNISONE [Concomitant]
     Indication: CROHN'S DISEASE
  3. ASACOL [Concomitant]
     Indication: CROHN'S DISEASE
  4. IMURAN [Concomitant]
     Indication: CROHN'S DISEASE

REACTIONS (3)
  - WRONG TECHNIQUE IN DRUG USAGE PROCESS [None]
  - RECTAL HAEMORRHAGE [None]
  - CROHN'S DISEASE [None]
